FAERS Safety Report 16645243 (Version 1)
Quarter: 2019Q3

REPORT INFORMATION
  Report Type: Spontaneous
  Country: PL (occurrence: PL)
  Receive Date: 20190729
  Receipt Date: 20190729
  Transmission Date: 20191004
  Serious: Yes (Hospitalization, Other)
  Sender: FDA-Public Use
  Company Number: PL-GLAXOSMITHKLINE-PL2019135050

PATIENT
  Age: 31 Year
  Sex: Female

DRUGS (1)
  1. LAMOTRIGINE. [Suspect]
     Active Substance: LAMOTRIGINE
     Indication: DEPRESSION
     Dosage: 25 MG, UNK
     Route: 048
     Dates: start: 201501, end: 201502

REACTIONS (10)
  - Rash maculo-papular [Unknown]
  - Alanine aminotransferase increased [Unknown]
  - Drug reaction with eosinophilia and systemic symptoms [Unknown]
  - Leukocytosis [Unknown]
  - Eosinophilia [Unknown]
  - Pyrexia [Unknown]
  - Oedema [Unknown]
  - Lymphadenopathy [Unknown]
  - Creatinine renal clearance decreased [Unknown]
  - Blood lactate dehydrogenase increased [Unknown]
